FAERS Safety Report 14352031 (Version 3)
Quarter: 2018Q1

REPORT INFORMATION
  Report Type: Spontaneous
  Country: US (occurrence: US)
  Receive Date: 20180104
  Receipt Date: 20180222
  Transmission Date: 20180509
  Serious: No
  Sender: FDA-Public Use
  Company Number: US-PFIZER INC-2017552113

PATIENT
  Age: 60 Year
  Sex: Female
  Weight: 93.42 kg

DRUGS (2)
  1. IBRANCE [Suspect]
     Active Substance: PALBOCICLIB
     Indication: BREAST CANCER METASTATIC
     Dosage: 125 MG, CYCLIC (DAILY 1-21/ 28DAYS)
     Route: 048
     Dates: start: 20160304
  2. IBRANCE [Suspect]
     Active Substance: PALBOCICLIB
     Dosage: 125 MG, CYCLIC (DAY 1 - DAY 21 EVERY 28 DAYS)
     Route: 048
     Dates: start: 201711

REACTIONS (4)
  - Bone pain [Unknown]
  - Skin discolouration [Unknown]
  - Fatigue [Unknown]
  - Dry skin [Unknown]
